FAERS Safety Report 9850663 (Version 1)
Quarter: 2013Q4

REPORT INFORMATION
  Report Type: Spontaneous
  Country: US (occurrence: None)
  Receive Date: 20131127
  Receipt Date: 20131127
  Transmission Date: 20140711
  Serious: No
  Sender: FDA-Public Use
  Company Number: 224294LEO

PATIENT
  Sex: Male

DRUGS (8)
  1. PICATO GEL [Suspect]
     Indication: ACTINIC KERATOSIS
     Route: 061
     Dates: start: 20131012, end: 20131012
  2. PRADAXA (DABIGATRAN ETEXILATE MESILATE) [Concomitant]
  3. PROPANOLOL (PROPANOLOL) [Concomitant]
  4. PRAVASTATIN (PRAVASTATIN) [Concomitant]
  5. ASPIRIN (ACETYLSALICYLIC AICD) [Concomitant]
  6. FISH OIL (FISH OIL) [Concomitant]
  7. SAW PALMETTO (SERENOA REPENS) [Concomitant]
  8. VITAMINS (VITAMINS) [Concomitant]

REACTIONS (6)
  - Application site vesicles [None]
  - Application site vesicles [None]
  - Application site oedema [None]
  - Application site erythema [None]
  - Incorrect drug administration duration [None]
  - Drug administered at inappropriate site [None]
